FAERS Safety Report 24398709 (Version 1)
Quarter: 2024Q4

REPORT INFORMATION
  Report Type: Spontaneous
  Country: US (occurrence: US)
  Receive Date: 20241004
  Receipt Date: 20241004
  Transmission Date: 20250114
  Serious: Yes (Death, Other)
  Sender: AMGEN
  Company Number: US-AMGEN-USASP2024193456

PATIENT
  Age: 38 Year

DRUGS (5)
  1. BEVACIZUMAB [Suspect]
     Active Substance: BEVACIZUMAB
     Indication: Colorectal cancer
     Dosage: UNK
     Route: 065
     Dates: start: 2020
  2. LEUCOVORIN CALCIUM [Concomitant]
     Active Substance: LEUCOVORIN CALCIUM
  3. FLUOROURACIL [Concomitant]
     Active Substance: FLUOROURACIL
  4. OXALIPLATIN [Concomitant]
     Active Substance: OXALIPLATIN
  5. IRINOTECAN HYDROCHLORIDE [Concomitant]
     Active Substance: IRINOTECAN HYDROCHLORIDE

REACTIONS (2)
  - Colorectal cancer metastatic [Fatal]
  - Breast neoplasm [Unknown]

NARRATIVE: CASE EVENT DATE: 20200101
